FAERS Safety Report 5793613-6 (Version None)
Quarter: 2008Q2

REPORT INFORMATION
  Report Type: 
  Country: None (occurrence: None)
  Receive Date: 20080627
  Receipt Date: 20080623
  Transmission Date: 20081010
  Serious: Yes (Hospitalization, Other)
  Sender: FDA-Public Use
  Company Number: BE-BRISTOL-MYERS SQUIBB COMPANY-14237903

PATIENT
  Age: 72 Year
  Sex: Male

DRUGS (3)
  1. MAXIPIME [Suspect]
     Indication: FEBRILE NEUTROPENIA
  2. AMUKIN [Suspect]
     Indication: FEBRILE NEUTROPENIA
  3. GLAZIDIM [Concomitant]

REACTIONS (4)
  - COMA [None]
  - FEBRILE NEUTROPENIA [None]
  - RENAL FAILURE [None]
  - SEPTIC SHOCK [None]
